FAERS Safety Report 15117328 (Version 1)
Quarter: 2018Q3

REPORT INFORMATION
  Report Type: Spontaneous
  Country: US (occurrence: US)
  Receive Date: 20180612
  Receipt Date: 20180612
  Transmission Date: 20181010
  Serious: Yes (Hospitalization)
  Sender: FDA-Public Use
  Company Number: None

PATIENT
  Age: 82 Year
  Sex: Female
  Weight: 69.75 kg

DRUGS (17)
  1. IMATINIB [Suspect]
     Active Substance: IMATINIB
     Indication: CHRONIC MYELOID LEUKAEMIA
     Route: 048
     Dates: start: 20140430
  2. KLONOPIN [Concomitant]
     Active Substance: CLONAZEPAM
  3. ONDANSETRON 8MG [Concomitant]
     Active Substance: ONDANSETRON
  4. LOSARTAN 100MG [Concomitant]
     Active Substance: LOSARTAN
  5. SIMVASTATIN 20MG [Concomitant]
     Active Substance: SIMVASTATIN
  6. VITAMIN E COMPLEX [Concomitant]
  7. CALCIUM 500+D [Concomitant]
     Active Substance: CALCIUM\VITAMIN D
  8. PRILOSEC 40MG [Concomitant]
  9. NORCO 5?325MG [Concomitant]
  10. VITAMIN C [Concomitant]
     Active Substance: ASCORBIC ACID
  11. AMITRIPTYLINE 25MG [Concomitant]
     Active Substance: AMITRIPTYLINE
  12. CENTRUM SILVER ULTRA WOMENS [Concomitant]
  13. ASPIRIN 81MG [Concomitant]
     Active Substance: ASPIRIN
  14. CYANOCOBALAMIN. [Concomitant]
     Active Substance: CYANOCOBALAMIN
  15. FERROUS SULFATE 325MG [Concomitant]
     Active Substance: FERROUS SULFATE
  16. METOPROLOL TARTRATE 25MG [Concomitant]
     Active Substance: METOPROLOL TARTRATE
  17. RYTHMOL 225MG [Concomitant]

REACTIONS (1)
  - Pneumonia aspiration [None]

NARRATIVE: CASE EVENT DATE: 20180606
